FAERS Safety Report 9788203 (Version 2)
Quarter: 2014Q2

REPORT INFORMATION
  Report Type: Spontaneous
  Country: US (occurrence: US)
  Receive Date: 20131230
  Receipt Date: 20140526
  Transmission Date: 20141212
  Serious: No
  Sender: FDA-Public Use
  Company Number: US-B.I. PHARMACEUTICALS,INC./RIDGEFIELD-2013-BI-42746BP

PATIENT
  Age: 56 Year
  Sex: Female

DRUGS (1)
  1. COMBIVENT [Suspect]
     Indication: LUNG ABSCESS
     Dosage: DAILY DOSE: 80MCG/400MCG
     Route: 055
     Dates: start: 201207

REACTIONS (6)
  - Bronchitis [Not Recovered/Not Resolved]
  - Road traffic accident [Recovered/Resolved]
  - Inappropriate schedule of drug administration [Unknown]
  - Off label use [Unknown]
  - Product quality issue [Unknown]
  - Product quality issue [Unknown]
